FAERS Safety Report 8059282-X (Version None)
Quarter: 2012Q1

REPORT INFORMATION
  Report Type: 
  Country: None (occurrence: None)
  Receive Date: 20120120
  Receipt Date: 20120113
  Transmission Date: 20120608
  Serious: Yes (Other)
  Sender: FDA-Public Use
  Company Number: US-PFIZER INC-2012011047

PATIENT
  Sex: Female
  Weight: 63.5 kg

DRUGS (4)
  1. SPIRIVA [Suspect]
     Indication: LUNG DISORDER
     Dosage: UNK, DAILY
  2. PREMARIN [Suspect]
     Indication: HOT FLUSH
     Dosage: 0.625 MG, DAILY
  3. NORVASC [Suspect]
     Dosage: 5 MG, DAILY
  4. ADVAIR DISKUS 100/50 [Concomitant]
     Indication: LUNG DISORDER
     Dosage: UNK, 2X/DAY

REACTIONS (4)
  - MUSCULOSKELETAL DISCOMFORT [None]
  - SPINAL DISORDER [None]
  - NECK PAIN [None]
  - PHARYNGEAL DISORDER [None]
